FAERS Safety Report 9215973 (Version 3)
Quarter: 2013Q2

REPORT INFORMATION
  Report Type: Spontaneous
  Country: FR (occurrence: FR)
  Receive Date: 20130408
  Receipt Date: 20130515
  Transmission Date: 20140414
  Serious: Yes (Other)
  Sender: FDA-Public Use
  Company Number: FR-JNJFOC-20130317508

PATIENT
  Sex: Female
  Weight: 86 kg

DRUGS (5)
  1. RISPERDAL [Suspect]
     Indication: PSYCHOTIC DISORDER
     Route: 048
     Dates: start: 20130225, end: 20130322
  2. RISPERDAL [Suspect]
     Indication: SCHIZOPHRENIA
     Route: 048
     Dates: start: 20130225, end: 20130322
  3. RISPERDAL CONSTA [Suspect]
     Indication: PSYCHOTIC DISORDER
     Route: 030
     Dates: start: 20130313, end: 20130322
  4. RISPERDAL CONSTA [Suspect]
     Indication: SCHIZOPHRENIA
     Route: 030
     Dates: start: 20130313, end: 20130322
  5. LARGACTIL [Concomitant]
     Indication: SEDATIVE THERAPY
     Dosage: 25 DROPS FOUR TIMES A DAY
     Route: 048
     Dates: start: 20130225, end: 20130322

REACTIONS (3)
  - Ocular icterus [Unknown]
  - Cholestasis [Unknown]
  - Jaundice cholestatic [Not Recovered/Not Resolved]
